FAERS Safety Report 4651889-2 (Version None)
Quarter: 2005Q2

REPORT INFORMATION
  Report Type: 
  Country: None (occurrence: None)
  Receive Date: 20050504
  Receipt Date: 20050426
  Transmission Date: 20051028
  Serious: Yes (Hospitalization)
  Sender: FDA-Public Use
  Company Number: FR-GLAXOSMITHKLINE-B0379738A

PATIENT
  Age: 41 Year
  Sex: Female

DRUGS (13)
  1. TOPOTECAN [Suspect]
     Indication: OVARIAN CANCER
     Dosage: 55.15MG CUMULATIVE DOSE
     Route: 042
     Dates: start: 20021114, end: 20021118
  2. CYCLOPHOSPHAMIDE [Suspect]
     Indication: OVARIAN CANCER
     Dosage: 5400MG CUMULATIVE DOSE
     Route: 042
     Dates: start: 20021114, end: 20021115
  3. FUNGIZONE [Concomitant]
     Route: 065
     Dates: start: 20021127, end: 20021202
  4. MOPRAL [Concomitant]
     Route: 065
     Dates: start: 20021127, end: 20021202
  5. LASILIX [Concomitant]
     Route: 065
     Dates: start: 20021128
  6. BICARBONATE [Concomitant]
     Route: 065
     Dates: start: 20021127, end: 20021202
  7. DEBRIDAT [Concomitant]
     Route: 065
     Dates: start: 20021128, end: 20021201
  8. PERFALGAN [Concomitant]
     Route: 065
     Dates: start: 20021128, end: 20021129
  9. ATARAX [Concomitant]
     Route: 065
     Dates: start: 20021130
  10. STILNOX [Concomitant]
     Route: 065
  11. NEUPOGEN [Concomitant]
     Route: 065
     Dates: start: 20021128
  12. DUPHALAC [Concomitant]
     Route: 065
     Dates: start: 20021129, end: 20021130
  13. ALUMINUM HYDROXIDE AND MAGNESIUM TRISILICATE [Concomitant]
     Route: 065
     Dates: start: 20021130

REACTIONS (1)
  - FEBRILE BONE MARROW APLASIA [None]
